FAERS Safety Report 9174376 (Version 6)
Quarter: 2013Q4

REPORT INFORMATION
  Report Type: Report from Study
  Country: BR (occurrence: BR)
  Receive Date: 20130320
  Receipt Date: 20131105
  Transmission Date: 20140711
  Serious: Yes (Other)
  Sender: FDA-Public Use
  Company Number: PHHY2012BR111107

PATIENT
  Sex: Female
  Weight: 72 kg

DRUGS (9)
  1. FORASEQ [Suspect]
     Indication: EMPHYSEMA
     Dosage: 1 DF(1 CAPSULE OF EACH TREATMENT), BID
     Dates: start: 2008
  2. FORASEQ [Suspect]
     Dosage: 4 CAPSULES,DAILY
  3. ATURGYL [Concomitant]
  4. VENFORIN [Concomitant]
     Indication: DEPRESSION
     Dosage: 1 DF, QD
     Route: 048
  5. LAMICTAL [Concomitant]
     Indication: DEPRESSION
     Dosage: UNK UKN (A QUARTER TABLET IN THE MORNING AND A QUARTER TABLET AT NIGHT), UNK
     Route: 048
  6. LAMICTAL [Concomitant]
     Dosage: HALF TABLET TWICW DAILY
  7. EFEXOR XR [Concomitant]
     Indication: DEPRESSION
     Dosage: 1 DF, QD
     Route: 048
  8. NIMESULIDE [Concomitant]
     Indication: PAIN
     Dosage: 1 DF, QD
     Route: 048
  9. ALPRAZOLAM [Concomitant]
     Dosage: 2 DF, DAILY
     Route: 048

REACTIONS (16)
  - Bone disorder [Unknown]
  - Fall [Not Recovered/Not Resolved]
  - Spinal pain [Not Recovered/Not Resolved]
  - Intervertebral disc protrusion [Unknown]
  - Malaise [Unknown]
  - Emphysema [Unknown]
  - Dyspnoea [Not Recovered/Not Resolved]
  - Depression [Not Recovered/Not Resolved]
  - Mood altered [Unknown]
  - Anxiety [Unknown]
  - Agitation [Not Recovered/Not Resolved]
  - Depressed mood [Unknown]
  - Stress [Unknown]
  - Sleep disorder [Unknown]
  - Device malfunction [Unknown]
  - Fatigue [Unknown]
